FAERS Safety Report 17848321 (Version 5)
Quarter: 2021Q2

REPORT INFORMATION
  Report Type: Other
  Country: IT (occurrence: IT)
  Receive Date: 20200602
  Receipt Date: 20210601
  Transmission Date: 20210717
  Serious: Yes (Death, Hospitalization, Other)
  Sender: FDA-Public Use
  Company Number: IT-ROCHE-2606610

PATIENT
  Age: 50 Year
  Sex: Female
  Weight: 55 kg

DRUGS (17)
  1. LINEZOLID. [Concomitant]
     Active Substance: LINEZOLID
  2. GLATIRAMER ACETATE. [Concomitant]
     Active Substance: GLATIRAMER ACETATE
  3. HYDROXYCHLOROQUINE [Concomitant]
     Active Substance: HYDROXYCHLOROQUINE
  4. DARUNAVIR [Concomitant]
     Active Substance: DARUNAVIR
  5. CEFTRIAXONE. [Concomitant]
     Active Substance: CEFTRIAXONE
  6. CASPOFUNGIN [Concomitant]
     Active Substance: CASPOFUNGIN
  7. OXYGEN. [Concomitant]
     Active Substance: OXYGEN
  8. TERIFLUNOMIDE. [Concomitant]
     Active Substance: TERIFLUNOMIDE
  9. PIPERACILLIN AND TAZOBACTAM [Concomitant]
     Active Substance: PIPERACILLIN SODIUM\TAZOBACTAM SODIUM
  10. OCRELIZUMAB. [Suspect]
     Active Substance: OCRELIZUMAB
     Indication: SECONDARY PROGRESSIVE MULTIPLE SCLEROSIS
     Dosage: 4 CYCLES, DATE OF LAST DOSE TAKEN ON 12?FEB?2020
     Route: 042
     Dates: start: 20200201
  11. TRIMETHOPRIM SULFAMETHOXAZOLE [Concomitant]
     Active Substance: SULFAMETHOXAZOLE\TRIMETHOPRIM
  12. DEXAMETHASONE. [Concomitant]
     Active Substance: DEXAMETHASONE
  13. OZONE [Concomitant]
     Active Substance: OZONE
  14. RITONAVIR. [Concomitant]
     Active Substance: RITONAVIR
  15. NITROUS OXIDE. [Concomitant]
     Active Substance: NITROUS OXIDE
  16. INTERFERON BETA NOS [Concomitant]
     Active Substance: INTERFERON BETA
  17. MEROPENEM. [Concomitant]
     Active Substance: MEROPENEM

REACTIONS (7)
  - Acute pulmonary oedema [Fatal]
  - Dyspnoea [Unknown]
  - Syncope [Unknown]
  - Cardio-respiratory arrest [Fatal]
  - Pulmonary embolism [Recovered/Resolved]
  - Pyrexia [Unknown]
  - COVID-19 pneumonia [Fatal]

NARRATIVE: CASE EVENT DATE: 20200317
